FAERS Safety Report 21162040 (Version 1)
Quarter: 2022Q3

REPORT INFORMATION
  Report Type: Spontaneous
  Country: US (occurrence: None)
  Receive Date: 20220802
  Receipt Date: 20220802
  Transmission Date: 20221027
  Serious: Yes (Hospitalization, Other)
  Sender: FDA-Public Use
  Company Number: 2022A266775

PATIENT

DRUGS (1)
  1. FARXIGA [Suspect]
     Active Substance: DAPAGLIFLOZIN PROPANEDIOL
     Indication: Type 2 diabetes mellitus
     Dosage: 5.0MG UNKNOWN
     Route: 048

REACTIONS (5)
  - Diabetic ketoacidosis [Unknown]
  - Blood glucose increased [Unknown]
  - Disease complication [Unknown]
  - Treatment noncompliance [Unknown]
  - Adverse event [Unknown]
